FAERS Safety Report 4573887-X (Version None)
Quarter: 2005Q1

REPORT INFORMATION
  Report Type: 
  Country: None (occurrence: None)
  Receive Date: 20050203
  Receipt Date: 20050118
  Transmission Date: 20050727
  Serious: Yes (Other)
  Sender: FDA-Public Use
  Company Number: 05LEB0031

PATIENT
  Age: 49 Year
  Sex: Male

DRUGS (1)
  1. AGGRASTAT [Suspect]
     Indication: ACUTE CORONARY SYNDROME
     Dates: start: 20031117

REACTIONS (2)
  - VENTRICULAR FIBRILLATION [None]
  - VENTRICULAR TACHYCARDIA [None]
